FAERS Safety Report 4296055-8 (Version None)
Quarter: 2004Q1

REPORT INFORMATION
  Report Type: 
  Country: None (occurrence: None)
  Receive Date: 20040212
  Receipt Date: 20040202
  Transmission Date: 20041129
  Serious: Yes (Other)
  Sender: FDA-Public Use
  Company Number: NSADSS2002040848

PATIENT
  Age: 56 Year
  Sex: Male
  Weight: 92.9874 kg

DRUGS (10)
  1. REMICADE [Suspect]
     Indication: CROHN'S DISEASE
     Dosage: SEE IMAGE
     Route: 041
     Dates: start: 20020927, end: 20020927
  2. REMICADE [Suspect]
     Indication: CROHN'S DISEASE
     Dosage: SEE IMAGE
     Route: 041
     Dates: start: 20020716
  3. REMICADE [Suspect]
     Indication: CROHN'S DISEASE
     Dosage: SEE IMAGE
     Route: 041
     Dates: start: 20020730
  4. REMICADE [Suspect]
     Indication: CROHN'S DISEASE
     Dosage: SEE IMAGE
     Route: 041
     Dates: start: 20020826
  5. PREDNISONE [Suspect]
     Indication: PREMEDICATION
     Dosage: 20 MG
  6. ZESTRIL [Concomitant]
  7. ALBUTEROL [Concomitant]
  8. ACTOS [Concomitant]
  9. IMURAN [Concomitant]
  10. DIPHENHYRAMINE (DIPHENHYDRAMINE) [Concomitant]

REACTIONS (3)
  - FACE OEDEMA [None]
  - PERIORBITAL OEDEMA [None]
  - THROMBOTIC THROMBOCYTOPENIC PURPURA [None]
